FAERS Safety Report 7107504-1 (Version None)
Quarter: 2010Q4

REPORT INFORMATION
  Report Type: 
  Country: None (occurrence: None)
  Receive Date: 20101117
  Receipt Date: 20101108
  Transmission Date: 20110411
  Serious: Yes (Hospitalization, Other)
  Sender: FDA-Public Use
  Company Number: US-TEVA-254807USA

PATIENT
  Age: 40 Year
  Sex: Female

DRUGS (1)
  1. DIPHENHYDRAMINE HYDROCHLORIDE [Suspect]

REACTIONS (8)
  - CONVULSION [None]
  - DELIRIUM [None]
  - HYPERTENSION [None]
  - MYDRIASIS [None]
  - OVERDOSE [None]
  - SPEECH DISORDER [None]
  - TACHYCARDIA [None]
  - TREMOR [None]
